FAERS Safety Report 9921332 (Version 1)
Quarter: 2014Q1

REPORT INFORMATION
  Report Type: Spontaneous
  Country: IE (occurrence: IE)
  Receive Date: 20140225
  Receipt Date: 20140225
  Transmission Date: 20141002
  Serious: Yes (Death, Other)
  Sender: FDA-Public Use
  Company Number: PHHY2014IE021532

PATIENT
  Age: 55 Year
  Sex: Male

DRUGS (6)
  1. CICLOSPORIN [Suspect]
     Indication: PROPHYLAXIS AGAINST GRAFT VERSUS HOST DISEASE
  2. METHOTREXATE [Suspect]
     Indication: PROPHYLAXIS AGAINST GRAFT VERSUS HOST DISEASE
  3. AZATHIOPRINE [Suspect]
     Dosage: 1.5 MG/KG, UNK
     Route: 048
  4. BUSULFAN [Concomitant]
  5. CYCLOPHOSPHAMIDE [Concomitant]
  6. MESNA [Concomitant]

REACTIONS (9)
  - Infection [Fatal]
  - Mycosis fungoides stage II [Unknown]
  - Rash erythematous [Unknown]
  - Rash pruritic [Unknown]
  - Eczema [Unknown]
  - Impaired work ability [Unknown]
  - Nodule [Unknown]
  - Graft versus host disease in liver [Unknown]
  - Drug ineffective [Unknown]
